FAERS Safety Report 6296016-3 (Version None)
Quarter: 2009Q3

REPORT INFORMATION
  Report Type: 
  Country: None (occurrence: None)
  Receive Date: 20090804
  Receipt Date: 20090730
  Transmission Date: 20100115
  Serious: Yes (Other)
  Sender: FDA-Public Use
  Company Number: US-PFIZER INC-2008014019

PATIENT
  Sex: Female

DRUGS (7)
  1. LYRICA [Suspect]
     Indication: BACK PAIN
     Dosage: 50 MG, 2X/DAY
     Dates: start: 20080211
  2. LYRICA [Suspect]
     Indication: PAIN IN EXTREMITY
     Dosage: 25 MG, UNK
  3. LYRICA [Suspect]
     Indication: FIBROMYALGIA
  4. LYRICA [Suspect]
     Indication: NEUROPATHY PERIPHERAL
  5. VALSARTAN [Concomitant]
  6. ACTOS [Concomitant]
  7. HYDROCHLOROTHIAZIDE [Concomitant]

REACTIONS (3)
  - GASTROINTESTINAL DISORDER [None]
  - SKIN BURNING SENSATION [None]
  - TINNITUS [None]
